FAERS Safety Report 24415338 (Version 1)
Quarter: 2024Q4

REPORT INFORMATION
  Report Type: Spontaneous
  Country: US (occurrence: US)
  Receive Date: 20241009
  Receipt Date: 20241009
  Transmission Date: 20250114
  Serious: No
  Sender: JOHNSON AND JOHNSON
  Company Number: US-JNJFOC-20240971996

PATIENT
  Sex: Male

DRUGS (5)
  1. RISPERDAL [Suspect]
     Active Substance: RISPERIDONE
     Indication: Behaviour disorder
     Route: 048
     Dates: end: 2012
  2. RISPERDAL [Suspect]
     Active Substance: RISPERIDONE
     Indication: Anger
     Dosage: THERAPY START DATE: /FEB/2013
     Route: 048
     Dates: end: 201307
  3. RISPERDAL [Suspect]
     Active Substance: RISPERIDONE
     Dosage: THERAPY START DATE: /AUG/2013
     Route: 048
  4. RISPERIDONE [Suspect]
     Active Substance: RISPERIDONE
     Indication: Product used for unknown indication
     Route: 048
  5. CLONIDINE [Suspect]
     Active Substance: CLONIDINE
     Indication: Product used for unknown indication
     Route: 065
     Dates: end: 2012

REACTIONS (3)
  - Gynaecomastia [Unknown]
  - Weight increased [Unknown]
  - Sedation [Unknown]

NARRATIVE: CASE EVENT DATE: 20120101
